FAERS Safety Report 23411427 (Version 1)
Quarter: 2024Q1

REPORT INFORMATION
  Report Type: Spontaneous
  Country: JP (occurrence: JP)
  Receive Date: 20240117
  Receipt Date: 20240117
  Transmission Date: 20240409
  Serious: Yes (Other)
  Sender: FDA-Public Use
  Company Number: JP-PFIZER INC-202400010828

PATIENT
  Age: 79 Year
  Sex: Male

DRUGS (1)
  1. HALCION [Suspect]
     Active Substance: TRIAZOLAM
     Dosage: 0.25 MG
     Route: 048

REACTIONS (3)
  - Foreign body in throat [Unknown]
  - Product solubility abnormal [Unknown]
  - Dysgeusia [Unknown]
